FAERS Safety Report 10031652 (Version 5)
Quarter: 2014Q2

REPORT INFORMATION
  Report Type: Spontaneous
  Country: US (occurrence: US)
  Receive Date: 20140324
  Receipt Date: 20140522
  Transmission Date: 20141212
  Serious: No
  Sender: FDA-Public Use
  Company Number: US-PFIZER INC-2014079477

PATIENT
  Age: 76 Year
  Sex: Female

DRUGS (6)
  1. GLUCOTROL XL [Suspect]
     Indication: BLOOD GLUCOSE ABNORMAL
     Dosage: 10 MG, 2X/DAY
     Dates: start: 20051206
  2. GLUCOTROL XL [Suspect]
     Indication: TYPE 2 DIABETES MELLITUS
     Dosage: 10 MG, UNK
     Dates: start: 201308
  3. GLUCOTROL XL [Suspect]
     Dosage: 10 MG, DAILY
     Dates: start: 20130906
  4. MICARDIS [Concomitant]
     Dosage: UNK
     Dates: start: 20060519
  5. ARTHROTEC [Concomitant]
     Dosage: UNK
  6. INDAPAMIDE [Concomitant]
     Dosage: UNK
     Dates: start: 20080320

REACTIONS (5)
  - Abdominal pain upper [Unknown]
  - Nausea [Unknown]
  - Medication residue present [Recovered/Resolved with Sequelae]
  - Drug ineffective [Unknown]
  - Glycosylated haemoglobin increased [Unknown]
